FAERS Safety Report 4585317-2 (Version None)
Quarter: 2005Q1

REPORT INFORMATION
  Report Type: 
  Country: None (occurrence: None)
  Receive Date: 20050214
  Receipt Date: 20050201
  Transmission Date: 20050727
  Serious: Yes (Other)
  Sender: FDA-Public Use
  Company Number: 2005023429

PATIENT
  Sex: Female
  Weight: 58.0604 kg

DRUGS (1)
  1. NORVASC [Suspect]
     Indication: CARDIAC DISORDER
     Dosage: 10 MG (10 MG, QD INTERVAL: EVERY DAY), ORAL
     Route: 048

REACTIONS (5)
  - ATRIOVENTRICULAR BLOCK [None]
  - CARDIAC VALVE DISEASE [None]
  - INFLUENZA [None]
  - MEDICATION ERROR [None]
  - NASOPHARYNGITIS [None]
